FAERS Safety Report 5821582-9 (Version None)
Quarter: 2008Q3

REPORT INFORMATION
  Report Type: 
  Country: None (occurrence: None)
  Receive Date: 20080724
  Receipt Date: 20080718
  Transmission Date: 20090109
  Serious: Yes (Hospitalization, Other)
  Sender: FDA-Public Use
  Company Number: PHHY2008JP09565

PATIENT
  Sex: Female
  Weight: 29 kg

DRUGS (9)
  1. ZADITEN [Suspect]
     Indication: ECZEMA
     Dosage: 2 MG, UNK
     Route: 048
     Dates: start: 20071205, end: 20080530
  2. ALEVIATIN [Concomitant]
     Indication: LOSS OF CONSCIOUSNESS
     Dosage: 200 MG, UNK
     Route: 048
     Dates: start: 20070423
  3. ALEVIATIN [Concomitant]
     Dosage: 200 MG, UNK
     Route: 048
     Dates: start: 20080204
  4. MAGNESIUM OXIDE [Concomitant]
     Indication: CONSTIPATION
     Dosage: 2 G, UNK
     Route: 048
  5. CORINAE L [Concomitant]
     Indication: HYPERTENSION
     Dosage: 40 MG, UNK
     Route: 048
  6. DIOVAN [Concomitant]
     Indication: HYPERTENSION
     Dosage: 80 MG, UNK
     Route: 048
     Dates: start: 20080507
  7. VALPROATE SODIUM [Concomitant]
     Indication: LOSS OF CONSCIOUSNESS
     Dosage: UNK
     Route: 048
     Dates: start: 20080122, end: 20080204
  8. LEXIN [Concomitant]
     Indication: LOSS OF CONSCIOUSNESS
     Dosage: UNK
     Route: 048
     Dates: start: 20080111, end: 20080122
  9. ANTIHYPERTENSIVE DRUGS [Concomitant]

REACTIONS (18)
  - ALANINE AMINOTRANSFERASE INCREASED [None]
  - ASPARTATE AMINOTRANSFERASE INCREASED [None]
  - BLOOD ALKALINE PHOSPHATASE INCREASED [None]
  - BLOOD GLUCOSE INCREASED [None]
  - BLOOD LACTATE DEHYDROGENASE INCREASED [None]
  - BLOOD PRESSURE DECREASED [None]
  - BLOOD PRESSURE INCREASED [None]
  - DRUG LEVEL INCREASED [None]
  - ELECTROENCEPHALOGRAM ABNORMAL [None]
  - GAMMA-GLUTAMYLTRANSFERASE INCREASED [None]
  - HYPOPHAGIA [None]
  - HYPOTENSION [None]
  - LIVER DISORDER [None]
  - LOSS OF CONSCIOUSNESS [None]
  - PROTEIN URINE PRESENT [None]
  - RENAL DISORDER [None]
  - RESPIRATION ABNORMAL [None]
  - SYNCOPE [None]
